FAERS Safety Report 6157406-2 (Version None)
Quarter: 2009Q2

REPORT INFORMATION
  Report Type: 
  Country: None (occurrence: None)
  Receive Date: 20090416
  Receipt Date: 20090403
  Transmission Date: 20091009
  Serious: Yes (Other)
  Sender: FDA-Public Use
  Company Number: US-PFIZER INC-2009168844

PATIENT
  Weight: 52.154 kg

DRUGS (4)
  1. GEODON [Suspect]
     Indication: BIPOLAR II DISORDER
     Dosage: 60 MG, 1X/DAY
     Route: 048
     Dates: start: 20090101
  2. LAMICTAL [Concomitant]
     Dosage: UNK MEQ/L, UNK
  3. WELLBUTRIN [Concomitant]
     Dosage: UNK
  4. KLONOPIN [Concomitant]
     Dosage: 1 MG, 4X/DAY AS NEEDED

REACTIONS (3)
  - IRIS DISORDER [None]
  - MYDRIASIS [None]
  - VISION BLURRED [None]
